FAERS Safety Report 22108477 (Version 1)
Quarter: 2023Q1

REPORT INFORMATION
  Report Type: Spontaneous
  Country: US (occurrence: US)
  Receive Date: 20230317
  Receipt Date: 20230317
  Transmission Date: 20230418
  Serious: No
  Sender: FDA-Public Use
  Company Number: US-ALVOGEN-2022-ALVOGEN-120696

PATIENT
  Sex: Male

DRUGS (1)
  1. ESTRADIOL [Suspect]
     Active Substance: ESTRADIOL
     Indication: Product used for unknown indication
     Dates: start: 202207, end: 202207

REACTIONS (1)
  - Accidental exposure to product [Unknown]
